FAERS Safety Report 25736682 (Version 1)
Quarter: 2025Q3

REPORT INFORMATION
  Report Type: Spontaneous
  Country: EU (occurrence: EU)
  Receive Date: 20250828
  Receipt Date: 20250828
  Transmission Date: 20251020
  Serious: Yes (Hospitalization, Other)
  Sender: GLAXOSMITHKLINE
  Company Number: None

PATIENT
  Age: 68 Year
  Sex: Male
  Weight: 77 kg

DRUGS (11)
  1. INCRUSE ELLIPTA [Suspect]
     Active Substance: UMECLIDINIUM BROMIDE
     Indication: Product used for unknown indication
     Dosage: 55 ?G, QD (55 UG TAKE 1 INHALATION IN THE MORNING FOR 3 MONTHS)
     Route: 065
  2. TRAMADOL [Suspect]
     Active Substance: TRAMADOL
     Indication: Product used for unknown indication
     Dosage: 200 MG, QD (UNK, BID ARROW, LP)
     Route: 065
  3. ATORVASTATIN [Suspect]
     Active Substance: ATORVASTATIN
     Indication: Product used for unknown indication
     Dosage: 40 MG, QD (40 MG EVENING FOR 3 MONTHS ATORVASTATIN ACCORD)
  4. BISOPROLOL FUMARATE [Suspect]
     Active Substance: BISOPROLOL FUMARATE
     Indication: Product used for unknown indication
     Dosage: 5 MG, QD (5 MG MORNING FOR 3 MONTHS BISOPROLOL BGR)
  5. RAMIPRIL [Suspect]
     Active Substance: RAMIPRIL
     Indication: Product used for unknown indication
     Dosage: 2.5 MG, QD (2.5 MG MORNING FOR 3 MONTHS)
  6. KARDEGIC [Suspect]
     Active Substance: ASPIRIN DL-LYSINE
     Indication: Product used for unknown indication
     Dosage: 75 MG, QD (75 MG MORNING FOR 3 MONTHS)
  7. DOLIPRANE [Suspect]
     Active Substance: ACETAMINOPHEN
     Indication: Product used for unknown indication
     Dosage: 3000 MG, QD (1000 MG, TID  1 TABLET ORALLY IN THE MORNING, AT NOON, AND IN THE EVENING FOR 3 MONTHS)
     Route: 065
  8. KETOPROFEN [Suspect]
     Active Substance: KETOPROFEN
     Indication: Product used for unknown indication
  9. TRAMADOL [Suspect]
     Active Substance: TRAMADOL
     Indication: Product used for unknown indication
     Dosage: 150 MG, BID (150 MG, IN THE MORNING AND EVENING FOR 3 MONTHS)
  10. KETOCONAZOLE [Suspect]
     Active Substance: KETOCONAZOLE
     Indication: Product used for unknown indication
     Dosage: 2 DF, WE (20 MG/G GEL IN SACHET, TAKE 2 SACHETS PER WEEK FOR 1 MONTH)
     Route: 065
  11. DICLOFENAC DIETHYLAMINE [Suspect]
     Active Substance: DICLOFENAC DIETHYLAMINE
     Indication: Product used for unknown indication
     Dosage: 1 DF, BID (11.6 MG/G, ONE APPLICATION IN THE MORNING AND ONE IN THE EVENING FOR 15 DAYS)
     Route: 065

REACTIONS (17)
  - Angina unstable [Unknown]
  - Apnoea [Unknown]
  - Arthrodesis [Unknown]
  - Loss of personal independence in daily activities [Unknown]
  - Respiratory disorder [Unknown]
  - Articular disc disorder [Unknown]
  - Ill-defined disorder [Unknown]
  - Emphysema [Unknown]
  - Breath sounds abnormal [Unknown]
  - Back pain [Unknown]
  - Neck pain [Unknown]
  - Hyporeflexia [Unknown]
  - Arthralgia [Unknown]
  - Chest pain [Unknown]
  - Spinal pain [Unknown]
  - Fatigue [Unknown]
  - Obstructive sleep apnoea syndrome [Unknown]
